FAERS Safety Report 5471385-2 (Version None)
Quarter: 2007Q3

REPORT INFORMATION
  Report Type: 
  Country: None (occurrence: None)
  Receive Date: 20070928
  Receipt Date: 20060919
  Transmission Date: 20080115
  Serious: No
  Sender: FDA-Public Use
  Company Number: US-BRISTOL-MYERS SQUIBB COMPANY-13513619

PATIENT
  Age: 36 Year
  Sex: Female
  Weight: 118 kg

DRUGS (2)
  1. DEFINITY [Suspect]
     Indication: ECHOCARDIOGRAM
     Dosage: 2 CC IV FOLLOWED BY 1CC IV FOR A TOTAL OF 3 CC.
     Route: 042
     Dates: start: 20060919, end: 20060919
  2. HYPERTENSION MEDICATION [Concomitant]
     Indication: HYPERTENSION

REACTIONS (1)
  - BACK PAIN [None]
